FAERS Safety Report 17670461 (Version 3)
Quarter: 2020Q4

REPORT INFORMATION
  Report Type: Other
  Country: GB (occurrence: GB)
  Receive Date: 20200415
  Receipt Date: 20201117
  Transmission Date: 20210113
  Serious: Yes (Hospitalization, Other)
  Sender: FDA-Public Use
  Company Number: GB-ROCHE-2579704

PATIENT
  Sex: Female

DRUGS (1)
  1. OCREVUS [Suspect]
     Active Substance: OCRELIZUMAB
     Indication: RELAPSING-REMITTING MULTIPLE SCLEROSIS
     Dosage: FIRST CYCLE TWO - BUT DELAYED BY 7 MONTHS
     Route: 041

REACTIONS (7)
  - Decreased appetite [Unknown]
  - Mobility decreased [Unknown]
  - Syncope [Recovered/Resolved]
  - Sepsis [Unknown]
  - Disturbance in attention [Unknown]
  - Urinary tract infection [Recovered/Resolved]
  - Urinary incontinence [Unknown]

NARRATIVE: CASE EVENT DATE: 20201109
